FAERS Safety Report 9431812 (Version 2)
Quarter: 2013Q3

REPORT INFORMATION
  Report Type: Spontaneous
  Country: US (occurrence: US)
  Receive Date: 20130731
  Receipt Date: 20130815
  Transmission Date: 20140515
  Serious: Yes (Death, Hospitalization, Other)
  Sender: FDA-Public Use
  Company Number: US-009507513-1307USA013791

PATIENT
  Age: 2 Year
  Sex: Male

DRUGS (2)
  1. FUROSEMIDE [Suspect]
     Route: 048
  2. DIURIL [Suspect]
     Route: 048

REACTIONS (5)
  - Pneumonia fungal [Fatal]
  - Respiratory failure [Fatal]
  - Septic shock [Fatal]
  - Drug hypersensitivity [Unknown]
  - Drug administration error [Unknown]
